FAERS Safety Report 10161402 (Version 1)
Quarter: 2014Q2

REPORT INFORMATION
  Report Type: Spontaneous
  Country: US (occurrence: US)
  Receive Date: 20140509
  Receipt Date: 20140509
  Transmission Date: 20141212
  Serious: No
  Sender: FDA-Public Use
  Company Number: US-009507513-1405USA004730

PATIENT
  Sex: Female

DRUGS (2)
  1. EMEND FOR INJECTION [Suspect]
     Indication: PROPHYLAXIS OF NAUSEA AND VOMITING
     Dosage: UNK, ONCE
     Route: 042
  2. CISPLATIN [Concomitant]

REACTIONS (2)
  - Dyspnoea [Unknown]
  - Flushing [Unknown]
